FAERS Safety Report 13388023 (Version 1)
Quarter: 2017Q1

REPORT INFORMATION
  Report Type: Spontaneous
  Country: US (occurrence: US)
  Receive Date: 20170330
  Receipt Date: 20170330
  Transmission Date: 20170429
  Serious: Yes (Life-Threatening, Hospitalization)
  Sender: FDA-Public Use
  Company Number: US-PROCTER_AND_GAMBLE-GS17034160

PATIENT
  Age: 23 Year
  Sex: Male

DRUGS (7)
  1. DIPHENHYDRAMINE HCL [Suspect]
     Active Substance: DIPHENHYDRAMINE HYDROCHLORIDE
  2. CODEINE [Suspect]
     Active Substance: CODEINE
  3. OXYCODONE [Suspect]
     Active Substance: OXYCODONE
  4. COCAINE [Suspect]
     Active Substance: COCAINE
  5. GALANTAMINE. [Suspect]
     Active Substance: GALANTAMINE
  6. FENTANYL. [Suspect]
     Active Substance: FENTANYL
  7. QUININE [Suspect]
     Active Substance: QUININE

REACTIONS (13)
  - Miosis [Unknown]
  - Compartment syndrome [Unknown]
  - Agitation [Unknown]
  - Overdose [Unknown]
  - Hyperhidrosis [Unknown]
  - Drug withdrawal syndrome [Unknown]
  - Increased bronchial secretion [Unknown]
  - Drug screen positive [Unknown]
  - Cholinergic syndrome [Unknown]
  - Sinus tachycardia [Unknown]
  - Body temperature increased [Unknown]
  - Unresponsive to stimuli [Recovered/Resolved with Sequelae]
  - Renal failure [Unknown]
